FAERS Safety Report 9914058 (Version 1)
Quarter: 2014Q1

REPORT INFORMATION
  Report Type: Spontaneous
  Country: US (occurrence: None)
  Receive Date: 20140220
  Receipt Date: 20140220
  Transmission Date: 20141002
  Serious: No
  Sender: FDA-Public Use
  Company Number: None

PATIENT
  Age: 66 Year
  Sex: Male
  Weight: 82.56 kg

DRUGS (1)
  1. CMP DBCT LIPODERM [Suspect]
     Indication: TENDONITIS
     Dosage: 1-2 PUMPS  FOUR TIMES DAILY  APPLIED TO A SURFACE, USUALLY THE SKIN
     Route: 061
     Dates: start: 20140131, end: 20140206

REACTIONS (6)
  - Drug hypersensitivity [None]
  - Application site discolouration [None]
  - Application site erythema [None]
  - Application site vesicles [None]
  - Application site exfoliation [None]
  - Application site haemorrhage [None]
